FAERS Safety Report 9390303 (Version 1)
Quarter: 2013Q3

REPORT INFORMATION
  Report Type: Spontaneous
  Country: US (occurrence: US)
  Receive Date: 20130709
  Receipt Date: 20130709
  Transmission Date: 20140515
  Serious: Yes (Other)
  Sender: FDA-Public Use
  Company Number: US-AMGEN-USASP2013047540

PATIENT
  Age: 45 Year
  Sex: Female

DRUGS (1)
  1. ENBREL [Suspect]
     Indication: RHEUMATOID ARTHRITIS
     Dosage: 50 MG, QWK
     Route: 065
     Dates: start: 20100707, end: 201104

REACTIONS (5)
  - Limb injury [Recovered/Resolved]
  - Staphylococcal infection [Recovered/Resolved]
  - Joint contracture [Recovered/Resolved]
  - Arthropathy [Recovered/Resolved]
  - Soft tissue injury [Recovered/Resolved]
